FAERS Safety Report 14577672 (Version 1)
Quarter: 2018Q1

REPORT INFORMATION
  Report Type: Spontaneous
  Country: US (occurrence: US)
  Receive Date: 20180226
  Receipt Date: 20180226
  Transmission Date: 20180509
  Serious: Yes (Other)
  Sender: FDA-Public Use
  Company Number: None

PATIENT
  Age: 47 Year
  Sex: Female
  Weight: 66.6 kg

DRUGS (5)
  1. MONISTAT 1 COMBINATION PACK [Suspect]
     Active Substance: MICONAZOLE NITRATE
     Indication: FUNGAL INFECTION
     Dosage: QUANTITY:1 OVUAL;AT BEDTIME?
     Route: 067
     Dates: start: 20180225, end: 20180225
  2. VITAMIN D [Concomitant]
     Active Substance: CHOLECALCIFEROL
  3. MAGNESIUM [Concomitant]
     Active Substance: MAGNESIUM
  4. VITAMIN C [Concomitant]
     Active Substance: ASCORBIC ACID
  5. EVENING PRIMROSE OIL [Concomitant]
     Active Substance: EVENING PRIMROSE OIL\HERBALS

REACTIONS (7)
  - Genital erythema [None]
  - Genital swelling [None]
  - Genital haemorrhage [None]
  - Genital pain [None]
  - Pruritus genital [None]
  - Genital burning sensation [None]
  - Abdominal pain [None]

NARRATIVE: CASE EVENT DATE: 20180226
